FAERS Safety Report 18706353 (Version 3)
Quarter: 2024Q4

REPORT INFORMATION
  Report Type: Spontaneous
  Country: GB (occurrence: GB)
  Receive Date: 20210106
  Receipt Date: 20241218
  Transmission Date: 20250115
  Serious: Yes (Life-Threatening, Hospitalization, Other)
  Sender: AMGEN
  Company Number: GB-AMGEN-GBRSP2020211949

PATIENT
  Age: 7 Year
  Sex: Female

DRUGS (6)
  1. PROLIA [Suspect]
     Active Substance: DENOSUMAB
     Indication: Hypercalcaemia
     Dosage: 0.13 MILLIGRAM/KILOGRAM
     Route: 058
     Dates: start: 201802
  2. PROLIA [Suspect]
     Active Substance: DENOSUMAB
     Dosage: 0.2 MILLIGRAM/KILOGRAM
     Route: 058
     Dates: start: 2018
  3. PROLIA [Suspect]
     Active Substance: DENOSUMAB
     Dosage: 2.4 MILLIGRAM, Q4WK
     Route: 058
  4. PROLIA [Suspect]
     Active Substance: DENOSUMAB
     Dosage: 0.6 MILLIGRAM/KILOGRAM, Q8WK
     Route: 058
  5. PROLIA [Suspect]
     Active Substance: DENOSUMAB
     Dosage: 6 MILLIGRAM, Q6WK
     Route: 058
     Dates: start: 2018, end: 202004
  6. ZOLEDRONIC ACID [Concomitant]
     Active Substance: ZOLEDRONIC ACID
     Dosage: UNK

REACTIONS (13)
  - Hypercalcaemia [Recovered/Resolved]
  - Femur fracture [Recovered/Resolved]
  - Nephrocalcinosis [Unknown]
  - Clavicle fracture [Recovered/Resolved]
  - Humerus fracture [Recovered/Resolved]
  - Fibula fracture [Recovered/Resolved]
  - Tibia fracture [Recovered/Resolved]
  - Foot fracture [Recovered/Resolved]
  - Therapeutic product effect incomplete [Unknown]
  - Rebound effect [Unknown]
  - Hypercalciuria [Unknown]
  - Off label use [Unknown]
  - Blood parathyroid hormone decreased [Unknown]

NARRATIVE: CASE EVENT DATE: 20180101
